FAERS Safety Report 15881351 (Version 10)
Quarter: 2022Q1

REPORT INFORMATION
  Report Type: Report from Study
  Country: CN (occurrence: None)
  Receive Date: 20190128
  Receipt Date: 20220203
  Transmission Date: 20220423
  Serious: Yes (Hospitalization)
  Sender: FDA-Public Use
  Company Number: CN-EISAI MEDICAL RESEARCH-EC-2019-050771

PATIENT
  Age: 45 Year
  Sex: Female
  Weight: 72 kg

DRUGS (12)
  1. LENVATINIB [Suspect]
     Active Substance: LENVATINIB
     Indication: Papillary thyroid cancer
     Route: 048
     Dates: start: 20181220, end: 20190117
  2. LENVATINIB [Suspect]
     Active Substance: LENVATINIB
     Route: 048
     Dates: start: 20190227, end: 20190315
  3. LENVATINIB [Suspect]
     Active Substance: LENVATINIB
     Route: 048
     Dates: start: 20190329, end: 20190425
  4. LENVATINIB [Suspect]
     Active Substance: LENVATINIB
     Route: 048
     Dates: start: 20190603, end: 20200831
  5. LENVATINIB [Suspect]
     Active Substance: LENVATINIB
     Route: 048
     Dates: start: 20211028, end: 20211125
  6. HUANGKUI [Concomitant]
  7. CORBIN [Concomitant]
  8. LEKADIPINE HYDROCHLORIDE [Concomitant]
  9. INDAPAMIDE [Concomitant]
     Active Substance: INDAPAMIDE
  10. CANDESARTAN [Concomitant]
     Active Substance: CANDESARTAN
  11. GUANXINDANSHEN DROP PILLS [Concomitant]
  12. LEVOTHYROXINE SODIUM [Concomitant]
     Active Substance: LEVOTHYROXINE SODIUM
     Route: 048
     Dates: start: 20200827

REACTIONS (3)
  - Hypoglycaemia [Recovered/Resolved]
  - Nephrotic syndrome [Recovered/Resolved]
  - Hypertension [Not Recovered/Not Resolved]

NARRATIVE: CASE EVENT DATE: 20181228
